FAERS Safety Report 4309443-8 (Version None)
Quarter: 2004Q1

REPORT INFORMATION
  Report Type: 
  Country: None (occurrence: None)
  Receive Date: 20040302
  Receipt Date: 20030731
  Transmission Date: 20041129
  Serious: Yes (Other)
  Sender: FDA-Public Use
  Company Number: PHBS2003JP08157

PATIENT
  Age: 80 Year

DRUGS (2)
  1. DIOVAN [Suspect]
     Dosage: 40 MG/DAY
     Route: 048
     Dates: start: 20030601
  2. ARICEPT [Concomitant]
     Indication: DEMENTIA
     Route: 048

REACTIONS (1)
  - ATRIAL FIBRILLATION [None]
